FAERS Safety Report 24166910 (Version 1)
Quarter: 2024Q3

REPORT INFORMATION
  Report Type: Spontaneous
  Country: US (occurrence: US)
  Receive Date: 20240802
  Receipt Date: 20240802
  Transmission Date: 20241017
  Serious: No
  Sender: ENDO
  Company Number: ENDB23-02964

PATIENT
  Sex: Male

DRUGS (5)
  1. EDEX [Suspect]
     Active Substance: ALPROSTADIL
     Indication: Product used for unknown indication
     Dosage: UNK UNKNOWN, UNKNOWN (TWO PACK)
     Route: 065
  2. EDEX [Suspect]
     Active Substance: ALPROSTADIL
     Indication: Product used for unknown indication
     Dosage: UNK UNKNOWN, UNKNOWN (TWO PACK)
     Route: 065
  3. EDEX [Suspect]
     Active Substance: ALPROSTADIL
     Indication: Product used for unknown indication
     Dosage: UNK UNKNOWN, UNKNOWN (TWO PACK)
     Route: 065
  4. EDEX [Suspect]
     Active Substance: ALPROSTADIL
     Indication: Product used for unknown indication
     Dosage: UNK UNKNOWN, UNKNOWN (TWO PACK)
     Route: 065
  5. EDEX [Suspect]
     Active Substance: ALPROSTADIL
     Indication: Product used for unknown indication
     Dosage: UNK UNKNOWN, UNKNOWN (TWO PACK)
     Route: 065

REACTIONS (1)
  - Drug ineffective [Unknown]
